FAERS Safety Report 8709205 (Version 4)
Quarter: 2012Q4

REPORT INFORMATION
  Report Type: 
  Country: US (occurrence: US)
  Receive Date: 20120806
  Receipt Date: 20121011
  Transmission Date: 20130627
  Serious: Yes (Hospitalization, Other)
  Sender: FDA-Public Use
  Company Number: US-ASTRAZENECA-2012SE53418

PATIENT
  Age: 63 Year
  Sex: Female

DRUGS (14)
  1. CRESTOR [Suspect]
     Route: 048
  2. CRESTOR [Suspect]
     Route: 048
  3. OMEPRAZOLE [Suspect]
     Route: 048
  4. DYE [Suspect]
     Route: 065
  5. LISINOPRIL [Concomitant]
  6. ASPIRIN [Concomitant]
  7. FISH OIL [Concomitant]
  8. PLAVIX [Concomitant]
  9. METFORMIN [Concomitant]
  10. PROCARDIA [Concomitant]
  11. ANTIVERT [Concomitant]
     Dosage: 25 MG THREE TIMES DAILY AS NEEDED
  12. DIFLUNISAL [Concomitant]
  13. LOPRESSOR [Concomitant]
  14. LEFLUNOMIDE [Concomitant]

REACTIONS (11)
  - Myocardial infarction [Unknown]
  - Rheumatoid arthritis [Unknown]
  - Scleroderma [Unknown]
  - Acute coronary syndrome [Unknown]
  - Arteriosclerosis [Unknown]
  - Hypertension [Unknown]
  - Dyslipidaemia [Unknown]
  - Diabetes mellitus [Unknown]
  - Adverse event [Unknown]
  - Vomiting [Unknown]
  - Nausea [Unknown]
